FAERS Safety Report 8536490-2 (Version None)
Quarter: 2012Q3

REPORT INFORMATION
  Report Type: 
  Country: None (occurrence: None)
  Receive Date: 20120725
  Receipt Date: 20120719
  Transmission Date: 20120928
  Serious: Yes (Hospitalization)
  Sender: FDA-Public Use
  Company Number: PHHY2012NL062145

PATIENT
  Sex: Male
  Weight: 75 kg

DRUGS (6)
  1. NEORAL [Suspect]
     Indication: ACUTE MYELOID LEUKAEMIA
     Dosage: 100 MG, BID
     Dates: start: 20120531
  2. FOLIC ACID [Concomitant]
     Dosage: 5 MG, QD
     Dates: start: 20120201
  3. COTRIM [Concomitant]
     Dosage: 480 MG, QD
     Dates: start: 20120701
  4. CEFTAZIDIME [Concomitant]
     Dates: start: 20120701
  5. VALACICLOVIR [Concomitant]
     Dosage: 500 MG, BID
     Dates: start: 20120613
  6. OMEPRAZOLE [Concomitant]
     Dosage: 40 MG, QD
     Dates: start: 20120711

REACTIONS (2)
  - ATAXIA [None]
  - DYSARTHRIA [None]
